FAERS Safety Report 9834262 (Version 2)
Quarter: 2014Q1

REPORT INFORMATION
  Report Type: Spontaneous
  Country: BR (occurrence: BR)
  Receive Date: 20140122
  Receipt Date: 20140131
  Transmission Date: 20141002
  Serious: Yes (Life-Threatening)
  Sender: FDA-Public Use
  Company Number: BR-JNJFOC-20140109244

PATIENT
  Age: 40 Year
  Sex: Female
  Weight: 56 kg

DRUGS (1)
  1. REMICADE [Suspect]
     Indication: RHEUMATOID ARTHRITIS
     Route: 042
     Dates: start: 20140114

REACTIONS (3)
  - Chills [Recovered/Resolved]
  - Infusion related reaction [Recovered/Resolved]
  - Tremor [Recovered/Resolved]
